FAERS Safety Report 23217483 (Version 1)
Quarter: 2023Q4

REPORT INFORMATION
  Report Type: Spontaneous
  Country: RO (occurrence: RO)
  Receive Date: 20231122
  Receipt Date: 20231122
  Transmission Date: 20240110
  Serious: Yes (Other)
  Sender: FDA-Public Use
  Company Number: None

PATIENT
  Age: 19 Year
  Sex: Male

DRUGS (5)
  1. CYCLOPHOSPHAMIDE [Suspect]
     Active Substance: CYCLOPHOSPHAMIDE
     Indication: Aplastic anaemia
     Dosage: 300 MG/M2( PTCY)
     Route: 065
     Dates: start: 20160929
  2. FLUDARABINE [Suspect]
     Active Substance: FLUDARABINE PHOSPHATE
     Indication: Aplastic anaemia
     Dosage: 30 MG/M2/DAY IN DAY - 5, - 4, - 3 AND - 2
     Route: 065
     Dates: start: 20160929
  3. MYCOPHENOLIC ACID [Suspect]
     Active Substance: MYCOPHENOLIC ACID
     Indication: Product used for unknown indication
     Dosage: UNK
     Route: 065
     Dates: start: 20160929
  4. MELPHALAN [Suspect]
     Active Substance: MELPHALAN
     Indication: Bone marrow conditioning regimen
     Dosage: UNK
     Route: 065
     Dates: start: 20160929
  5. TACROLIMUS [Suspect]
     Active Substance: TACROLIMUS
     Indication: Aplastic anaemia
     Dosage: UNK
     Route: 065
     Dates: start: 20160929

REACTIONS (5)
  - Enterococcal infection [Unknown]
  - Cytomegalovirus infection [Unknown]
  - Off label use [Unknown]
  - Mucosal inflammation [Unknown]
  - Pyrexia [Unknown]
